FAERS Safety Report 22939417 (Version 2)
Quarter: 2024Q2

REPORT INFORMATION
  Report Type: Report from Study
  Country: US (occurrence: US)
  Receive Date: 20230913
  Receipt Date: 20240529
  Transmission Date: 20240716
  Serious: Yes (Death)
  Sender: FDA-Public Use
  Company Number: US-PFIZER INC-202300295473

PATIENT
  Age: 36 Year
  Sex: Female

DRUGS (10)
  1. FENTANYL CITRATE [Suspect]
     Active Substance: FENTANYL CITRATE
     Dosage: UNK
  2. ALPRAZOLAM [Suspect]
     Active Substance: ALPRAZOLAM
     Dosage: UNK
  3. HEROIN [Suspect]
     Active Substance: DIAMORPHINE
     Dosage: UNK
  4. ISOTONITAZENE [Suspect]
     Active Substance: ISOTONITAZENE
     Dosage: UNK
  5. XYLAZINE [Suspect]
     Active Substance: XYLAZINE
     Dosage: UNK
  6. BENZOYLECGONINE [Concomitant]
     Active Substance: BENZOYLECGONINE
     Dosage: UNK
  7. COCAINE [Concomitant]
     Active Substance: COCAINE
     Dosage: UNK
  8. CODEINE [Concomitant]
     Active Substance: CODEINE
     Dosage: UNK
  9. MORPHINE [Concomitant]
     Active Substance: MORPHINE
     Dosage: UNK
  10. TRAMADOL [Concomitant]
     Active Substance: TRAMADOL\TRAMADOL HYDROCHLORIDE
     Dosage: UNK

REACTIONS (2)
  - Toxicity to various agents [Fatal]
  - Accident [Fatal]
